FAERS Safety Report 5474719-8 (Version None)
Quarter: 2007Q3

REPORT INFORMATION
  Report Type: 
  Country: None (occurrence: None)
  Receive Date: 20070927
  Receipt Date: 20070927
  Transmission Date: 20080115
  Serious: Yes (Death, Life-Threatening, Hospitalization)
  Sender: FDA-Public Use
  Company Number: None

PATIENT
  Age: 72 Year
  Sex: Female

DRUGS (10)
  1. WARFARIN SODIUM [Suspect]
     Indication: ATRIAL FIBRILLATION
     Dosage: UNKNOWN PO
     Route: 048
  2. WARFARIN SODIUM [Concomitant]
  3. CLONIDINE [Concomitant]
  4. LISINOPRIL [Concomitant]
  5. ACEBUTOLOL [Concomitant]
  6. FAMOTIDINE [Concomitant]
  7. CARTIA XT [Concomitant]
  8. LASIX [Concomitant]
  9. TRACLEER [Concomitant]
  10. HYDRALAZINE HCL [Concomitant]

REACTIONS (3)
  - COAGULOPATHY [None]
  - INTRACRANIAL ANEURYSM [None]
  - SUBARACHNOID HAEMORRHAGE [None]
